FAERS Safety Report 7907026-1 (Version None)
Quarter: 2011Q4

REPORT INFORMATION
  Report Type: 
  Country: None (occurrence: None)
  Receive Date: 20111110
  Receipt Date: 20111102
  Transmission Date: 20120403
  Serious: Yes (Hospitalization, Disabling, Other)
  Sender: FDA-Public Use
  Company Number: US-MERCK-1110USA02741

PATIENT
  Age: 69 Year
  Sex: Female

DRUGS (4)
  1. ONE-A-DAY ESSENTIAL VITAMINS [Concomitant]
     Route: 048
  2. FOSAMAX [Suspect]
     Indication: OSTEOPOROSIS PROPHYLAXIS
     Route: 048
     Dates: start: 20030805, end: 20110401
  3. ALENDRONATE SODIUM [Suspect]
     Indication: OSTEOPOROSIS PROPHYLAXIS
     Route: 048
     Dates: start: 20080305, end: 20110328
  4. FOSAMAX [Suspect]
     Indication: OSTEOPOROSIS
     Route: 048
     Dates: start: 20030805, end: 20110401

REACTIONS (7)
  - VENTRICULAR EXTRASYSTOLES [None]
  - FEMUR FRACTURE [None]
  - ABDOMINAL ABSCESS [None]
  - PITUITARY TUMOUR BENIGN [None]
  - APPENDICITIS PERFORATED [None]
  - FALL [None]
  - LOW TURNOVER OSTEOPATHY [None]
